FAERS Safety Report 14156112 (Version 1)
Quarter: 2017Q4

REPORT INFORMATION
  Report Type: Spontaneous
  Country: FR (occurrence: FR)
  Receive Date: 20171103
  Receipt Date: 20171103
  Transmission Date: 20180321
  Serious: Yes (Other)
  Sender: FDA-Public Use
  Company Number: FR-JNJFOC-20171033465

PATIENT
  Age: 33 Year
  Sex: Female

DRUGS (2)
  1. GOLIMUMAB [Suspect]
     Active Substance: GOLIMUMAB
     Indication: AXIAL SPONDYLOARTHRITIS
     Dosage: 1 DOSE
     Route: 058
     Dates: start: 20170401
  2. BILASKA [Suspect]
     Active Substance: BILASTINE
     Indication: SEASONAL ALLERGY
     Route: 048
     Dates: start: 2017, end: 2017

REACTIONS (2)
  - Deafness neurosensory [Recovered/Resolved]
  - Tinnitus [Not Recovered/Not Resolved]

NARRATIVE: CASE EVENT DATE: 2017
